FAERS Safety Report 13859249 (Version 1)
Quarter: 2017Q3

REPORT INFORMATION
  Report Type: Spontaneous
  Country: IT (occurrence: IT)
  Receive Date: 20170811
  Receipt Date: 20170811
  Transmission Date: 20171127
  Serious: Yes (Other)
  Sender: FDA-Public Use
  Company Number: IT-MYLANLABS-2017M1042852

PATIENT

DRUGS (3)
  1. PREDNISONE. [Suspect]
     Active Substance: PREDNISONE
     Indication: LANGERHANS^ CELL HISTIOCYTOSIS
     Dosage: 10 MG/M2/WEEK IN THREE DOSES
     Route: 048
  2. VINBLASTINE [Suspect]
     Active Substance: VINBLASTINE
     Indication: LANGERHANS^ CELL HISTIOCYTOSIS
     Dosage: 1.5 MG/M2 ON FIRST DAY OF WEEK
     Route: 040
  3. PREDNISONE. [Suspect]
     Active Substance: PREDNISONE
     Dosage: 10 MG/M2 IN 3 DOSES ON DAYS 1-5
     Route: 048

REACTIONS (3)
  - Gastrointestinal toxicity [Unknown]
  - Mucosal inflammation [Unknown]
  - Anaemia [Recovered/Resolved]
